FAERS Safety Report 8027880-5 (Version None)
Quarter: 2012Q1

REPORT INFORMATION
  Report Type: 
  Country: None (occurrence: None)
  Receive Date: 20120106
  Receipt Date: 20120103
  Transmission Date: 20120608
  Serious: Yes (Hospitalization)
  Sender: FDA-Public Use
  Company Number: US-JNJFOC-20120100646

PATIENT
  Sex: Male
  Weight: 79.38 kg

DRUGS (18)
  1. RISPERDAL CONSTA [Suspect]
     Indication: AUTISM
     Route: 030
     Dates: start: 20100101, end: 20111228
  2. RISPERDAL [Suspect]
     Dosage: 1 MG IN AM AND 1 MG IN PM
     Route: 048
     Dates: start: 20020101, end: 20030101
  3. RISPERDAL [Suspect]
     Route: 048
     Dates: start: 20030101, end: 20111228
  4. RISPERDAL CONSTA [Suspect]
     Route: 030
     Dates: start: 20111228
  5. SIPRAKTIN [Concomitant]
     Route: 065
     Dates: end: 20110101
  6. RISPERDAL [Suspect]
     Indication: AUTISM
     Route: 048
     Dates: start: 20030101, end: 20111228
  7. RISPERDAL CONSTA [Suspect]
     Indication: BIPOLAR DISORDER
     Route: 030
     Dates: start: 20100101, end: 20111228
  8. RISPERDAL CONSTA [Suspect]
     Indication: SCHIZOPHRENIA
     Route: 030
     Dates: start: 20100101, end: 20111228
  9. RISPERDAL [Suspect]
     Indication: BIPOLAR DISORDER
     Route: 048
     Dates: start: 20030101, end: 20111228
  10. RISPERDAL CONSTA [Suspect]
     Route: 030
     Dates: start: 20111228
  11. RISPERDAL [Suspect]
     Indication: SCHIZOPHRENIA
     Dosage: 1 MG IN AM AND 1 MG IN PM
     Route: 048
     Dates: start: 20020101, end: 20030101
  12. RISPERDAL [Suspect]
     Dosage: 1 MG IN AM AND 1 MG IN PM
     Route: 048
     Dates: start: 20020101, end: 20030101
  13. RISPERDAL [Suspect]
     Dosage: 1 MG IN AM AND 1 MG IN PM
     Route: 048
     Dates: start: 20020101, end: 20030101
  14. SIPRAKTIN [Concomitant]
     Route: 065
     Dates: end: 20110601
  15. RISPERDAL CONSTA [Suspect]
     Route: 030
     Dates: start: 20111228
  16. RISPERDAL CONSTA [Suspect]
     Indication: MENTAL RETARDATION
     Route: 030
     Dates: start: 20100101, end: 20111228
  17. RISPERDAL CONSTA [Suspect]
     Route: 030
     Dates: start: 20111228
  18. RISPERDAL [Suspect]
     Indication: MENTAL RETARDATION
     Route: 048
     Dates: start: 20030101, end: 20111228

REACTIONS (9)
  - RHINORRHOEA [None]
  - RESTLESSNESS [None]
  - STARING [None]
  - HYPERHIDROSIS [None]
  - INSOMNIA [None]
  - NONSPECIFIC REACTION [None]
  - PAIN [None]
  - ANGER [None]
  - DRUG INEFFECTIVE [None]
